FAERS Safety Report 17688312 (Version 1)
Quarter: 2020Q2

REPORT INFORMATION
  Report Type: Spontaneous
  Country: DE (occurrence: DE)
  Receive Date: 20200421
  Receipt Date: 20200421
  Transmission Date: 20200714
  Serious: Yes (Hospitalization, Disabling, Other)
  Sender: FDA-Public Use
  Company Number: DE-PBT-000151

PATIENT
  Age: 52 Year

DRUGS (24)
  1. TACROLIMUS. [Suspect]
     Active Substance: TACROLIMUS
     Indication: PROPHYLAXIS AGAINST TRANSPLANT REJECTION
     Route: 065
     Dates: start: 201306, end: 201308
  2. VALGANCICLOVIR. [Suspect]
     Active Substance: VALGANCICLOVIR
     Indication: ANTIVIRAL PROPHYLAXIS
     Route: 065
  3. INFLIXIMAB [Suspect]
     Active Substance: INFLIXIMAB
     Indication: IMMUNOSUPPRESSION
     Dosage: ONCE
     Route: 042
     Dates: start: 201310
  4. FOSCARNET SODIUM. [Suspect]
     Active Substance: FOSCARNET SODIUM
     Indication: ANTIVIRAL PROPHYLAXIS
     Route: 065
     Dates: start: 201309
  5. TACROLIMUS. [Suspect]
     Active Substance: TACROLIMUS
     Indication: IMMUNOSUPPRESSION
     Dosage: TARGET TROUGH LEVEL 3-4 NG/MICROLITRE
     Route: 065
     Dates: start: 201309, end: 201312
  6. MYCOPHENOLATE MOFETIL. [Suspect]
     Active Substance: MYCOPHENOLATE MOFETIL
     Indication: IMMUNOSUPPRESSION
     Dosage: 2000 MG / DAY
     Route: 065
     Dates: end: 201305
  7. VALGANCICLOVIR. [Suspect]
     Active Substance: VALGANCICLOVIR
     Indication: ANTIVIRAL PROPHYLAXIS
     Dosage: UNKNOWN
     Route: 065
     Dates: start: 201312
  8. PREDNISOLONE. [Suspect]
     Active Substance: PREDNISOLONE
     Indication: IMMUNOSUPPRESSION
     Route: 065
     Dates: start: 201310, end: 201310
  9. GANCICLOVIR. [Suspect]
     Active Substance: GANCICLOVIR
     Indication: ANTIVIRAL PROPHYLAXIS
     Route: 042
  10. TACROLIMUS. [Suspect]
     Active Substance: TACROLIMUS
     Indication: IMMUNOSUPPRESSION
     Route: 065
     Dates: start: 201306, end: 201308
  11. GANCICLOVIR. [Suspect]
     Active Substance: GANCICLOVIR
     Indication: ANTIVIRAL PROPHYLAXIS
     Route: 042
  12. TACROLIMUS. [Suspect]
     Active Substance: TACROLIMUS
     Indication: IMMUNOSUPPRESSION
     Dosage: INITIAL TARGET TROUGH LEVEL 8-10 AND 6-7 NG/MICROLITRES
     Route: 065
     Dates: end: 201305
  13. VALGANCICLOVIR. [Suspect]
     Active Substance: VALGANCICLOVIR
     Indication: ANTIVIRAL PROPHYLAXIS
     Dosage: UNKNOWN
     Route: 065
     Dates: start: 201307
  14. MYCOPHENOLATE MOFETIL. [Suspect]
     Active Substance: MYCOPHENOLATE MOFETIL
     Indication: PROPHYLAXIS AGAINST TRANSPLANT REJECTION
     Dosage: 2000 MG / DAY
     Route: 065
     Dates: end: 201305
  15. CASPOFUNGIN [Suspect]
     Active Substance: CASPOFUNGIN
     Indication: PRODUCT USED FOR UNKNOWN INDICATION
     Route: 065
     Dates: start: 201307
  16. GANCICLOVIR. [Suspect]
     Active Substance: GANCICLOVIR
     Indication: ANTIVIRAL PROPHYLAXIS
     Route: 042
     Dates: start: 201307, end: 201312
  17. GANCICLOVIR. [Suspect]
     Active Substance: GANCICLOVIR
     Indication: ANTIVIRAL PROPHYLAXIS
     Route: 042
     Dates: start: 201307, end: 201312
  18. TACROLIMUS. [Suspect]
     Active Substance: TACROLIMUS
     Indication: PROPHYLAXIS AGAINST TRANSPLANT REJECTION
     Dosage: INITIAL TARGET TROUGH LEVEL 8-10 AND 6-7 NG/MICROLITRES
     Route: 065
     Dates: end: 201305
  19. TACROLIMUS. [Suspect]
     Active Substance: TACROLIMUS
     Indication: PROPHYLAXIS AGAINST TRANSPLANT REJECTION
     Dosage: TARGET TROUGH LEVEL 3-4 NG/MICROLITRE
     Route: 065
     Dates: start: 201309, end: 201312
  20. ALEMTUZUMAB [Suspect]
     Active Substance: ALEMTUZUMAB
     Indication: IMMUNOSUPPRESSION
     Dosage: DAY 0 AND 1
     Route: 065
     Dates: end: 201305
  21. ALEMTUZUMAB [Suspect]
     Active Substance: ALEMTUZUMAB
     Indication: PROPHYLAXIS AGAINST TRANSPLANT REJECTION
     Dosage: (DAY 0 AND 1)
     Route: 065
     Dates: end: 201305
  22. PREDNISOLONE. [Suspect]
     Active Substance: PREDNISOLONE
     Indication: IMMUNOSUPPRESSION
     Dosage: TAPERED DOWN TO MAINTENANCE DOSE OF 5 MG/D
     Route: 065
     Dates: end: 201305
  23. PREDNISOLONE. [Suspect]
     Active Substance: PREDNISOLONE
     Indication: IMMUNOSUPPRESSION
     Dosage: INTRAOPERATIVELY
     Route: 065
  24. EVEROLIMUS. [Suspect]
     Active Substance: EVEROLIMUS
     Indication: IMMUNOSUPPRESSION
     Dosage: TARGET TROUGH LEVEL 2-3 NG/MICROLITRE
     Route: 065
     Dates: start: 201309, end: 201312

REACTIONS (8)
  - Cytomegalovirus gastritis [Unknown]
  - Oesophageal candidiasis [Recovered/Resolved]
  - Drug ineffective [Unknown]
  - Organ failure [Unknown]
  - Cytomegalovirus infection [Recovered/Resolved]
  - Transplant rejection [Unknown]
  - Cytomegalovirus oesophagitis [Recovered/Resolved]
  - Leukaemia [Unknown]
